FAERS Safety Report 4757268-1 (Version None)
Quarter: 2005Q3

REPORT INFORMATION
  Report Type: 
  Country: None (occurrence: None)
  Receive Date: 20050829
  Receipt Date: 20050816
  Transmission Date: 20060218
  Serious: Yes (Hospitalization)
  Sender: FDA-Public Use
  Company Number: 2005075366

PATIENT
  Age: 72 Year
  Sex: Male

DRUGS (5)
  1. XALATAN [Suspect]
     Indication: ILL-DEFINED DISORDER
     Dosage: TOPICAL
     Route: 061
  2. DIAMOX [Suspect]
     Indication: ILL-DEFINED DISORDER
     Dosage: ORAL
     Route: 048
     Dates: start: 20050115, end: 20050225
  3. SPIROCTAZINE (ALTIZIDE, SPIRONOLACTONE) [Concomitant]
  4. SECTRAL [Concomitant]
  5. ZELITREX (VALACICLOVIR) [Concomitant]

REACTIONS (1)
  - TOXIC SKIN ERUPTION [None]
